FAERS Safety Report 19785480 (Version 1)
Quarter: 2021Q3

REPORT INFORMATION
  Report Type: Spontaneous
  Country: US (occurrence: US)
  Receive Date: 20210903
  Receipt Date: 20210903
  Transmission Date: 20211014
  Serious: Yes (Death, Hospitalization, Other)
  Sender: FDA-Public Use
  Company Number: US-FRESENIUS KABI-FK202109369

PATIENT
  Age: 53 Year
  Sex: Female

DRUGS (2)
  1. FLUDARABINE [Suspect]
     Active Substance: FLUDARABINE PHOSPHATE
     Indication: LYMPHODEPLETION
     Route: 065
  2. CYCLOPHOSPHAMIDE. [Suspect]
     Active Substance: CYCLOPHOSPHAMIDE
     Indication: LYMPHODEPLETION
     Route: 065

REACTIONS (8)
  - Pyrexia [Unknown]
  - Ureaplasma infection [Fatal]
  - Cytokine release syndrome [Unknown]
  - Enterococcal bacteraemia [Unknown]
  - Hyperammonaemia [Fatal]
  - Pneumonia [Fatal]
  - Pancytopenia [Unknown]
  - Escherichia bacteraemia [Unknown]
